FAERS Safety Report 6507328-X (Version None)
Quarter: 2009Q4

REPORT INFORMATION
  Report Type: 
  Country: None (occurrence: None)
  Receive Date: 20091221
  Receipt Date: 20090714
  Transmission Date: 20100525
  Serious: Yes (Disabling)
  Sender: FDA-Public Use
  Company Number: US-ASTRAZENECA-2009SE32315

PATIENT
  Age: 43 Year
  Sex: Female

DRUGS (2)
  1. SENSORCAINE [Suspect]
     Indication: MUSCULOSKELETAL PAIN
     Route: 014
     Dates: start: 20040603
  2. PAIN PUMP [Suspect]
     Indication: MUSCULOSKELETAL PAIN
     Route: 065
     Dates: start: 20090603

REACTIONS (2)
  - JOINT INJURY [None]
  - MUSCULOSKELETAL PAIN [None]
